FAERS Safety Report 7045932-3 (Version None)
Quarter: 2010Q4

REPORT INFORMATION
  Report Type: 
  Country: None (occurrence: None)
  Receive Date: 20101014
  Receipt Date: 20101011
  Transmission Date: 20110411
  Serious: Yes (Hospitalization)
  Sender: FDA-Public Use
  Company Number: FR-WYE-H17992610

PATIENT
  Sex: Female

DRUGS (5)
  1. INIPOMP [Suspect]
     Route: 065
     Dates: start: 20080101, end: 20081001
  2. RIFINAH [Suspect]
     Dosage: 2 DOSAGE FORMS DAILY
     Route: 048
     Dates: start: 20080301, end: 20080501
  3. PREDNISONE [Suspect]
     Indication: RHEUMATOID ARTHRITIS
     Route: 048
     Dates: start: 20050101
  4. METHOTREXATE [Suspect]
     Route: 048
     Dates: start: 20070101, end: 20081001
  5. KALEORID [Suspect]
     Route: 048

REACTIONS (3)
  - ALVEOLITIS [None]
  - LUNG DISORDER [None]
  - LUNG INFILTRATION [None]
